FAERS Safety Report 14963444 (Version 1)
Quarter: 2018Q2

REPORT INFORMATION
  Report Type: Spontaneous
  Country: GB (occurrence: ES)
  Receive Date: 20180601
  Receipt Date: 20180601
  Transmission Date: 20180711
  Serious: Yes (Other)
  Sender: FDA-Public Use
  Company Number: ES-FRESENIUS KABI-FK201806128

PATIENT
  Age: 79 Year
  Sex: Male

DRUGS (9)
  1. AMIODARONE [Suspect]
     Active Substance: AMIODARONE
     Indication: PRODUCT USED FOR UNKNOWN INDICATION
     Dosage: 200 MG EVERY 12 HOURS
     Dates: start: 20171219, end: 20180112
  2. VANCOMICINA [Concomitant]
     Active Substance: VANCOMYCIN
  3. FUROSEMIDA [Concomitant]
     Active Substance: FUROSEMIDE
  4. LINEZOLID KABI [Suspect]
     Active Substance: LINEZOLID
     Indication: ANTIBIOTIC PROPHYLAXIS
     Route: 042
     Dates: start: 20171221, end: 20180125
  5. TAZOBACTAM [Suspect]
     Active Substance: TAZOBACTAM
     Indication: ANTIBIOTIC PROPHYLAXIS
     Dosage: 2.25 GRAM EVERY 6 HOURS
     Dates: start: 20171221, end: 20171225
  6. METOCLOPRAMIDA [Concomitant]
     Active Substance: METOCLOPRAMIDE HYDROCHLORIDE
  7. CEFAZOLINA [Concomitant]
     Active Substance: CEFAZOLIN SODIUM
  8. DOMPERIDONA [Concomitant]
  9. OMEPRAZOLE. [Suspect]
     Active Substance: OMEPRAZOLE
     Indication: PROPHYLAXIS AGAINST GASTROINTESTINAL ULCER
     Route: 042
     Dates: start: 20171221, end: 20171225

REACTIONS (5)
  - Anaemia [Not Recovered/Not Resolved]
  - Spontaneous haematoma [Recovering/Resolving]
  - Leukopenia [Recovered/Resolved]
  - Hypertransaminasaemia [Recovered/Resolved]
  - Platelet count decreased [Not Recovered/Not Resolved]

NARRATIVE: CASE EVENT DATE: 20171224
